FAERS Safety Report 8327556-0 (Version None)
Quarter: 2012Q2

REPORT INFORMATION
  Report Type: 
  Country: None (occurrence: None)
  Receive Date: 20120502
  Receipt Date: 20110908
  Transmission Date: 20120825
  Serious: Yes (Death)
  Sender: FDA-Public Use
  Company Number: CA-BAYER-2011-064404

PATIENT
  Age: 44 Year
  Sex: Female

DRUGS (1)
  1. YAZ [Suspect]

REACTIONS (4)
  - PULMONARY EMBOLISM [None]
  - ASTHENIA [None]
  - ABDOMINAL PAIN [None]
  - CARDIAC ARREST [None]
